FAERS Safety Report 8369818-7 (Version None)
Quarter: 2012Q2

REPORT INFORMATION
  Report Type: 
  Country: None (occurrence: None)
  Receive Date: 20120518
  Receipt Date: 20120509
  Transmission Date: 20120825
  Serious: Yes (Hospitalization, Other)
  Sender: FDA-Public Use
  Company Number: BR-ABBOTT-11P-020-0886222-00

PATIENT
  Sex: Female
  Weight: 52 kg

DRUGS (4)
  1. HUMIRA [Suspect]
     Route: 058
  2. HUMIRA [Suspect]
     Indication: CROHN'S DISEASE
     Dosage: 4 INJECTIONS IN ONE DAY
     Route: 058
     Dates: start: 20110801
  3. HUMIRA [Suspect]
     Dosage: 2 INJECTIONS IN ONE DAY
     Route: 058
  4. UNKNOWN HOMEOPATHIC DRUG [Concomitant]
     Indication: DEPRESSION

REACTIONS (22)
  - ASTHENIA [None]
  - ABDOMINAL PAIN [None]
  - URINARY TRACT INFECTION [None]
  - POSTOPERATIVE WOUND COMPLICATION [None]
  - INFLAMMATION [None]
  - APPLICATION SITE HYPERSENSITIVITY [None]
  - COLONIC STENOSIS [None]
  - WOUND SECRETION [None]
  - FATIGUE [None]
  - LOCAL SWELLING [None]
  - PLEURAL EFFUSION [None]
  - WEIGHT DECREASED [None]
  - CROHN'S DISEASE [None]
  - INTESTINAL FISTULA [None]
  - PYREXIA [None]
  - ENTERITIS [None]
  - INTESTINAL STENOSIS [None]
  - ERYTHEMA [None]
  - BACK PAIN [None]
  - GASTROINTESTINAL INFECTION [None]
  - DRUG INEFFECTIVE [None]
  - ILEAL STENOSIS [None]
